FAERS Safety Report 6939912-3 (Version None)
Quarter: 2010Q3

REPORT INFORMATION
  Report Type: 
  Country: None (occurrence: None)
  Receive Date: 20100825
  Receipt Date: 20100818
  Transmission Date: 20110219
  Serious: Yes (Hospitalization)
  Sender: FDA-Public Use
  Company Number: US-JNJFOC-20100806628

PATIENT
  Age: 69 Year
  Sex: Male
  Weight: 70.31 kg

DRUGS (7)
  1. EXTRA STRENGTH TYLENOL [Suspect]
     Indication: ARTHRITIS
     Route: 048
  2. EXTRA STRENGTH TYLENOL [Suspect]
     Indication: ABDOMINAL DISCOMFORT
     Route: 048
  3. ACTOS [Concomitant]
  4. METFORMIN [Concomitant]
  5. LISINOPRIL [Concomitant]
     Indication: BLOOD PRESSURE ABNORMAL
  6. MULTI-VITAMINS [Concomitant]
  7. FISH OIL [Concomitant]

REACTIONS (2)
  - GASTROINTESTINAL HAEMORRHAGE [None]
  - PRODUCT COLOUR ISSUE [None]
